FAERS Safety Report 8867256 (Version 1)
Quarter: 2012Q4

REPORT INFORMATION
  Report Type: 
  Country: US (occurrence: US)
  Receive Date: 20121025
  Receipt Date: 20121025
  Transmission Date: 20130627
  Serious: No
  Sender: FDA-Public Use
  Company Number: US-AMGEN-USASP2012015573

PATIENT
  Age: 54 Year
  Sex: Female
  Weight: 74.38 kg

DRUGS (8)
  1. ENBREL [Suspect]
     Indication: PRODUCT USED FOR UNKNOWN INDICATION
     Dosage: 50 mg, qwk
     Route: 058
  2. CIMZIA [Concomitant]
     Dosage: UNK
     Route: 058
  3. METHOTREXATE [Concomitant]
     Dosage: 25 mg, UNK
     Route: 058
  4. FOLIC ACID [Concomitant]
     Dosage: 1 mg, UNK
     Route: 048
  5. MELOXICAM [Concomitant]
     Dosage: 15 mg, UNK
     Route: 048
  6. PROTONIX [Concomitant]
     Dosage: 20 mg, UNK
     Route: 048
  7. VICODIN [Concomitant]
     Dosage: 5 mg, UNK
     Route: 048
  8. PROPRANOLOL [Concomitant]
     Dosage: 20 mg, UNK
     Route: 048

REACTIONS (1)
  - Drug ineffective [Unknown]
